FAERS Safety Report 10169746 (Version 5)
Quarter: 2015Q3

REPORT INFORMATION
  Report Type: Spontaneous
  Country: US (occurrence: US)
  Receive Date: 20140513
  Receipt Date: 20150825
  Transmission Date: 20151125
  Serious: Yes (Hospitalization, Disabling, Other)
  Sender: FDA-Public Use
  Company Number: US-MERCK-0301USA02148

PATIENT
  Sex: Female
  Weight: 92.97 kg

DRUGS (2)
  1. FOSAMAX [Suspect]
     Active Substance: ALENDRONATE SODIUM
     Indication: OSTEOPOROSIS PROPHYLAXIS
     Dosage: 70 MG, QW
     Route: 048
     Dates: start: 1995, end: 200601
  2. FOSAMAX PLUS D [Suspect]
     Active Substance: ALENDRONATE SODIUM\CHOLECALCIFEROL
     Indication: OSTEOPOROSIS PROPHYLAXIS
     Dosage: 70 MG, QW
     Route: 048
     Dates: start: 20060121, end: 2008

REACTIONS (14)
  - Osteoporosis [Unknown]
  - Impaired healing [Unknown]
  - Upper limb fracture [Unknown]
  - Diabetes mellitus [Unknown]
  - Blood cholesterol increased [Unknown]
  - Articular calcification [Unknown]
  - Rash [Not Recovered/Not Resolved]
  - Sciatica [Not Recovered/Not Resolved]
  - Umbilical hernia [Unknown]
  - Osteoarthritis [Unknown]
  - Hypertension [Unknown]
  - Spinal osteoarthritis [Unknown]
  - Obesity [Unknown]
  - Femur fracture [Unknown]

NARRATIVE: CASE EVENT DATE: 1999
